FAERS Safety Report 10611178 (Version 1)
Quarter: 2014Q4

REPORT INFORMATION
  Report Type: Spontaneous
  Country: FR (occurrence: None)
  Receive Date: 20141124
  Receipt Date: 20141124
  Transmission Date: 20150529
  Serious: Yes (Hospitalization, Other)
  Sender: FDA-Public Use
  Company Number: 2014313517

PATIENT
  Age: 56 Year
  Sex: Female

DRUGS (4)
  1. XGEVA [Concomitant]
     Active Substance: DENOSUMAB
  2. FRAGMINE (DALTEPARIN SODIUM) SOLUTION FOR INJECTION [Suspect]
     Active Substance: DALTEPARIN SODIUM
     Indication: HEPATOCELLULAR CARCINOMA
     Dosage: 1X/DAY
     Route: 058
     Dates: start: 200406, end: 201409
  3. APROVEL (IRBESARTAN) [Concomitant]
  4. DURAGESIC [Concomitant]
     Active Substance: FENTANYL

REACTIONS (10)
  - Haematemesis [None]
  - Oedema [None]
  - Melaena [None]
  - Abdominal pain upper [None]
  - Prothrombin time ratio increased [None]
  - Dyspnoea [None]
  - Orthopnoea [None]
  - Pleural effusion [None]
  - Ascites [None]
  - Activated partial thromboplastin time prolonged [None]

NARRATIVE: CASE EVENT DATE: 20140914
